FAERS Safety Report 6807134-2 (Version None)
Quarter: 2010Q2

REPORT INFORMATION
  Report Type: 
  Country: None (occurrence: None)
  Receive Date: 20100628
  Receipt Date: 20100628
  Transmission Date: 20101027
  Serious: Yes (Other)
  Sender: FDA-Public Use
  Company Number: None

PATIENT
  Age: 38 Year
  Sex: Female
  Weight: 88.905 kg

DRUGS (1)
  1. PARAGARD T 380A [Suspect]
     Indication: CONTRACEPTION
     Dates: start: 20080609, end: 20100611

REACTIONS (2)
  - DRUG EXPOSURE DURING PREGNANCY [None]
  - PREGNANCY WITH CONTRACEPTIVE DEVICE [None]
